FAERS Safety Report 10485626 (Version 1)
Quarter: 2014Q4

REPORT INFORMATION
  Report Type: Spontaneous
  Country: US (occurrence: US)
  Receive Date: 20141001
  Receipt Date: 20141001
  Transmission Date: 20150528
  Serious: Yes (Hospitalization, Other)
  Sender: FDA-Public Use
  Company Number: US-AMGEN-USASP2014074697

PATIENT
  Age: 55 Year
  Sex: Female

DRUGS (5)
  1. ENBREL [Suspect]
     Active Substance: ETANERCEPT
     Indication: PSORIASIS
     Dosage: 50 MG, Q2WK
     Route: 065
  2. METHOTREXATE [Concomitant]
     Active Substance: METHOTREXATE
     Dosage: 3 YEARS DURATION
  3. HUMIRA [Concomitant]
     Active Substance: ADALIMUMAB
     Dosage: COUPLE OF MONTHS DURATION
  4. REMICADE [Concomitant]
     Active Substance: INFLIXIMAB
     Dosage: 3 MONTHS DURATION
  5. ENBREL [Suspect]
     Active Substance: ETANERCEPT
     Indication: PSORIATIC ARTHROPATHY

REACTIONS (9)
  - Haemorrhage [Recovered/Resolved]
  - Hypertension [Recovered/Resolved]
  - Blister [Recovered/Resolved]
  - Infection [Recovered/Resolved]
  - Visual impairment [Recovered/Resolved]
  - Psoriatic arthropathy [Unknown]
  - Neuropathic arthropathy [Recovered/Resolved]
  - Psoriasis [Not Recovered/Not Resolved]
  - Skin tightness [Recovered/Resolved]
